FAERS Safety Report 25012542 (Version 1)
Quarter: 2025Q1

REPORT INFORMATION
  Report Type: Spontaneous
  Country: GB (occurrence: GB)
  Receive Date: 20250226
  Receipt Date: 20250226
  Transmission Date: 20250409
  Serious: Yes (Other)
  Sender: GLAXOSMITHKLINE
  Company Number: None

PATIENT

DRUGS (1)
  1. ANORO ELLIPTA [Suspect]
     Active Substance: UMECLIDINIUM BROMIDE\VILANTEROL TRIFENATATE
     Indication: Product used for unknown indication
     Route: 065

REACTIONS (5)
  - Muscular weakness [Unknown]
  - Hypertension [Unknown]
  - Asthenia [Recovering/Resolving]
  - Respiration abnormal [Unknown]
  - Medication error [Unknown]

NARRATIVE: CASE EVENT DATE: 20241226
